FAERS Safety Report 5898056-2 (Version None)
Quarter: 2008Q3

REPORT INFORMATION
  Report Type: 
  Country: None (occurrence: None)
  Receive Date: 20080904
  Receipt Date: 20071008
  Transmission Date: 20090109
  Serious: Yes (Life-Threatening)
  Sender: FDA-Public Use
  Company Number: 200712301

PATIENT
  Age: 35 Year
  Sex: Male
  Weight: 100.2449 kg

DRUGS (11)
  1. CARIMUNE [Suspect]
     Indication: DISEASE RECURRENCE
     Dosage: 39 G ONCE IV ; 40 G DAILY IV
     Route: 042
     Dates: start: 20070927, end: 20070927
  2. CARIMUNE [Suspect]
     Indication: HYPOGAMMAGLOBULINAEMIA
     Dosage: 39 G ONCE IV ; 40 G DAILY IV
     Route: 042
     Dates: start: 20070927, end: 20070927
  3. CARIMUNE [Suspect]
     Indication: IMMUNODEFICIENCY COMMON VARIABLE
     Dosage: 39 G ONCE IV ; 40 G DAILY IV
     Route: 042
     Dates: start: 20070927, end: 20070927
  4. CARIMUNE [Suspect]
     Indication: PNEUMONIA
     Dosage: 39 G ONCE IV ; 40 G DAILY IV
     Route: 042
     Dates: start: 20070927, end: 20070927
  5. CARIMUNE [Suspect]
     Indication: DISEASE RECURRENCE
     Dosage: 39 G ONCE IV ; 40 G DAILY IV
     Route: 042
     Dates: start: 20070402
  6. CARIMUNE [Suspect]
     Indication: HYPOGAMMAGLOBULINAEMIA
     Dosage: 39 G ONCE IV ; 40 G DAILY IV
     Route: 042
     Dates: start: 20070402
  7. CARIMUNE [Suspect]
     Indication: IMMUNODEFICIENCY COMMON VARIABLE
     Dosage: 39 G ONCE IV ; 40 G DAILY IV
     Route: 042
     Dates: start: 20070402
  8. CARIMUNE [Suspect]
     Indication: PNEUMONIA
     Dosage: 39 G ONCE IV ; 40 G DAILY IV
     Route: 042
     Dates: start: 20070402
  9. TESTOSTERONE [Concomitant]
  10. VERAMYST [Concomitant]
  11. BACTROBAN [Concomitant]

REACTIONS (5)
  - ANAPHYLACTIC REACTION [None]
  - BACK PAIN [None]
  - CHEST PAIN [None]
  - FLUSHING [None]
  - NAUSEA [None]
